FAERS Safety Report 7598535-6 (Version None)
Quarter: 2011Q3

REPORT INFORMATION
  Report Type: 
  Country: None (occurrence: None)
  Receive Date: 20110708
  Receipt Date: 20110705
  Transmission Date: 20111222
  Serious: Yes (Hospitalization, Other)
  Sender: FDA-Public Use
  Company Number: US-ELI_LILLY_AND_COMPANY-US201008003381

PATIENT
  Sex: Male
  Weight: 111.57 kg

DRUGS (15)
  1. BYETTA [Suspect]
     Indication: TYPE 2 DIABETES MELLITUS
     Dosage: 10 UG, BID
     Route: 058
     Dates: start: 20050101
  2. LUNESTA [Concomitant]
     Dosage: 3 MG, EACH EVENING
  3. AMLODIPINE [Concomitant]
     Dosage: 10 MG, QD
  4. ZANTAC [Concomitant]
     Dosage: 150 MG, EACH EVENING
     Route: 048
  5. NORVASC [Concomitant]
     Dosage: 10 MG, QD
     Route: 048
  6. CRESTOR [Concomitant]
     Dosage: 10 MG, EACH EVENING
     Route: 048
  7. FLONASE [Concomitant]
     Dosage: 2 DF, QD
  8. VITAMIN B-12 [Concomitant]
     Dosage: 100 UG, BID
  9. ALLOPURINOL [Concomitant]
     Dosage: 300 MG, QD
  10. AVANDAMET [Concomitant]
     Dosage: 1 DF, BID
     Route: 048
  11. ATENOLOL AND CHLORTHALIDONE [Concomitant]
     Dosage: 1 DF, QD
  12. FLOMAX [Concomitant]
     Dosage: 0.4 MG, QD
  13. ASPIRIN [Concomitant]
     Dosage: 81 MG, EACH EVENING
  14. LEVAQUIN [Concomitant]
     Dosage: 500 MG, QD
     Route: 048
  15. PHENTERMINE HCL [Concomitant]
     Dosage: 37.5 MG, QD
     Route: 048

REACTIONS (4)
  - PANCREATIC ABSCESS [None]
  - PNEUMONIA [None]
  - PANCREATITIS ACUTE [None]
  - PANCREATITIS RELAPSING [None]
